FAERS Safety Report 15101859 (Version 4)
Quarter: 2018Q3

REPORT INFORMATION
  Report Type: Spontaneous
  Country: IN (occurrence: IN)
  Receive Date: 20180703
  Receipt Date: 20180910
  Transmission Date: 20181010
  Serious: Yes (Death, Life-Threatening, Hospitalization, Other)
  Sender: FDA-Public Use
  Company Number: IN-BRISTOL-MYERS SQUIBB COMPANY-BMS-2018-061904

PATIENT
  Age: 51 Year
  Sex: Male

DRUGS (1)
  1. NIVOLUMAB [Suspect]
     Active Substance: NIVOLUMAB
     Indication: HEAD AND NECK CANCER
     Dosage: UNAVAILABLE
     Route: 065

REACTIONS (8)
  - General physical health deterioration [Unknown]
  - Pneumonitis [Unknown]
  - Respiratory distress [Unknown]
  - Therapy non-responder [Unknown]
  - Performance status decreased [Unknown]
  - Systemic infection [Unknown]
  - Malignant neoplasm progression [Unknown]
  - Adverse event [Fatal]
